FAERS Safety Report 4388500-4 (Version None)
Quarter: 2004Q2

REPORT INFORMATION
  Report Type: 
  Country: None (occurrence: None)
  Receive Date: 20040625
  Receipt Date: 20040614
  Transmission Date: 20050107
  Serious: Yes (Other)
  Sender: FDA-Public Use
  Company Number: US-JNJFOC-20040603922

PATIENT

DRUGS (2)
  1. TOPAMAX [Suspect]
  2. PHENOBARBITAL TAB [Suspect]

REACTIONS (3)
  - AMMONIA INCREASED [None]
  - FREQUENT BOWEL MOVEMENTS [None]
  - STOOL ANALYSIS ABNORMAL [None]
